FAERS Safety Report 11678264 (Version 1)
Quarter: 2015Q4

REPORT INFORMATION
  Report Type: Report from Study
  Country: BR (occurrence: BR)
  Receive Date: 20151028
  Receipt Date: 20151028
  Transmission Date: 20160304
  Serious: Yes (Other)
  Sender: FDA-Public Use
  Company Number: PHHY2015BR135023

PATIENT
  Age: 68 Year
  Sex: Male

DRUGS (3)
  1. DABRAFENIB [Suspect]
     Active Substance: DABRAFENIB
     Indication: METASTATIC MALIGNANT MELANOMA
     Dosage: 150 MG, BID
     Route: 065
     Dates: start: 20141007, end: 20150915
  2. GABAPENTIN. [Concomitant]
     Active Substance: GABAPENTIN
     Indication: NEUROPATHY PERIPHERAL
     Dosage: 400 MG, BID
     Route: 048
     Dates: start: 201509
  3. TRAMETINIB [Suspect]
     Active Substance: TRAMETINIB
     Indication: METASTATIC MALIGNANT MELANOMA
     Dosage: 2 MG, QID
     Route: 065
     Dates: start: 20141007, end: 20150915

REACTIONS (8)
  - Hepatic failure [Unknown]
  - Metastases to liver [Unknown]
  - Rash [Recovered/Resolved]
  - Malignant neoplasm progression [Unknown]
  - Therapeutic response decreased [Recovered/Resolved]
  - Hepatic function abnormal [Not Recovered/Not Resolved]
  - Hypertension [Recovered/Resolved]
  - Acute kidney injury [Recovered/Resolved]

NARRATIVE: CASE EVENT DATE: 20140913
